FAERS Safety Report 9444762 (Version 3)
Quarter: 2013Q4

REPORT INFORMATION
  Report Type: Spontaneous
  Country: CA (occurrence: CA)
  Receive Date: 20130807
  Receipt Date: 20131105
  Transmission Date: 20140711
  Serious: Yes (Death, Hospitalization, Other)
  Sender: FDA-Public Use
  Company Number: CA-ASTELLAS-2013US008165

PATIENT
  Age: 76 Year
  Sex: Male

DRUGS (1)
  1. XTANDI [Suspect]
     Indication: PROSTATE CANCER METASTATIC
     Dosage: UNK
     Route: 048
     Dates: start: 20130705, end: 20130730

REACTIONS (3)
  - Hyponatraemia [Unknown]
  - Malignant neoplasm progression [Fatal]
  - Fatigue [Unknown]
